FAERS Safety Report 9688034 (Version 1)
Quarter: 2013Q4

REPORT INFORMATION
  Report Type: Spontaneous
  Country: US (occurrence: US)
  Receive Date: 20131114
  Receipt Date: 20131114
  Transmission Date: 20140711
  Serious: No
  Sender: FDA-Public Use
  Company Number: US-009507513-1311USA001225

PATIENT
  Sex: Male

DRUGS (2)
  1. ZIOPTAN [Suspect]
     Indication: INTRAOCULAR PRESSURE INCREASED
     Route: 047
  2. ZIOPTAN [Suspect]
     Indication: OPEN ANGLE GLAUCOMA

REACTIONS (2)
  - Rash [Unknown]
  - Pruritus [Unknown]
